FAERS Safety Report 13721918 (Version 1)
Quarter: 2017Q3

REPORT INFORMATION
  Report Type: Spontaneous
  Country: GB (occurrence: GB)
  Receive Date: 20170706
  Receipt Date: 20170706
  Transmission Date: 20171127
  Serious: Yes (Other)
  Sender: FDA-Public Use
  Company Number: GB-WEST-WARD PHARMACEUTICALS CORP.-GB-H14001-17-02291

PATIENT
  Age: 59 Year
  Sex: Female

DRUGS (1)
  1. METHYLPREDNISOLONE. [Suspect]
     Active Substance: METHYLPREDNISOLONE
     Indication: PERICARDITIS CONSTRICTIVE
     Dosage: PULSED
     Route: 042

REACTIONS (3)
  - Respiratory failure [Recovering/Resolving]
  - Lower respiratory tract infection [Recovering/Resolving]
  - Sepsis [Recovering/Resolving]
